FAERS Safety Report 15023045 (Version 1)
Quarter: 2018Q2

REPORT INFORMATION
  Report Type: Spontaneous
  Country: DE (occurrence: DE)
  Receive Date: 20180618
  Receipt Date: 20180618
  Transmission Date: 20180711
  Serious: Yes (Hospitalization)
  Sender: FDA-Public Use
  Company Number: DE-TEVA-2018-DE-907725

PATIENT
  Age: 73 Year
  Sex: Female

DRUGS (10)
  1. CLOPIDOGREL [Suspect]
     Active Substance: CLOPIDOGREL BISULFATE
     Dosage: 75 MG, NK
     Route: 065
  2. ACETYLSALICYLSAEURE [Suspect]
     Active Substance: ASPIRIN
     Dosage: 100 MG, NK
     Route: 065
  3. METHOCARBAMOL. [Concomitant]
     Active Substance: METHOCARBAMOL
     Dosage: NK
     Route: 065
  4. PREDNISOLON [Concomitant]
     Active Substance: PREDNISOLONE
     Dosage: 50 MG, NK
     Route: 065
  5. ARLEVERT [Concomitant]
     Active Substance: CINNARIZINE\DIMENHYDRINATE
     Dosage: NK
     Route: 065
  6. TAVOR [Concomitant]
     Dosage: 1 MG, NK
     Route: 065
  7. TRAMADOL. [Concomitant]
     Active Substance: TRAMADOL
     Dosage: 200 MG, NK
     Route: 065
  8. PANTOPRAZOL [Concomitant]
     Active Substance: PANTOPRAZOLE SODIUM
     Dosage: 40 MG, 1-0-0-0
     Route: 065
  9. DISTRANEURIN [Concomitant]
     Active Substance: CLOMETHIAZOLE
     Dosage: NK
     Route: 065
  10. SEEBRI [Concomitant]
     Active Substance: GLYCOPYRRONIUM
     Dosage: NK
     Route: 065

REACTIONS (4)
  - Haematochezia [Unknown]
  - Anaemia [Unknown]
  - Haematemesis [Unknown]
  - Chest discomfort [Unknown]
